FAERS Safety Report 18445685 (Version 1)
Quarter: 2020Q4

REPORT INFORMATION
  Report Type: Spontaneous
  Country: CA (occurrence: CA)
  Receive Date: 20201030
  Receipt Date: 20201030
  Transmission Date: 20210114
  Serious: Yes (Other)
  Sender: FDA-Public Use
  Company Number: CA-JNJFOC-20201034211

PATIENT
  Age: 57 Year
  Sex: Female
  Weight: 65 kg

DRUGS (2)
  1. INFLIXIMAB, RECOMBINANT [Suspect]
     Active Substance: INFLIXIMAB
     Indication: CROHN^S DISEASE
     Route: 042
  2. COLESTID [Concomitant]
     Active Substance: COLESTIPOL HYDROCHLORIDE

REACTIONS (5)
  - Inappropriate schedule of product administration [Unknown]
  - Off label use [Unknown]
  - Intestinal perforation [Unknown]
  - Weight decreased [Unknown]
  - Intentional product use issue [Unknown]
